FAERS Safety Report 7709730-7 (Version None)
Quarter: 2011Q3

REPORT INFORMATION
  Report Type: 
  Country: None (occurrence: None)
  Receive Date: 20110819
  Receipt Date: 20110804
  Transmission Date: 20111222
  Serious: Yes (Other)
  Sender: FDA-Public Use
  Company Number: 1000021963

PATIENT
  Age: 24 Year
  Sex: Female

DRUGS (8)
  1. PROMETHAZINE HYDROCHLORIDE [Suspect]
     Dosage: 25 MG (25 MG, 1 IN 1 D), ORAL; 50 MG (50 MG, 1 IN 1 D), ORAL
     Route: 048
     Dates: start: 20110502, end: 20110518
  2. PROMETHAZINE HYDROCHLORIDE [Suspect]
     Dosage: 25 MG (25 MG, 1 IN 1 D), ORAL; 50 MG (50 MG, 1 IN 1 D), ORAL
     Route: 048
     Dates: start: 20110519, end: 20110523
  3. XIMOVA (ZOPICLONE) (ZOPICLONE) [Concomitant]
  4. VALDOXAN (AGOMELATIN) [Suspect]
     Dosage: 25 MG (25 MG, 1 IN 1 D), ORAL; 50 MG (50 MG, 1 IN 1 D),ORAL
     Route: 048
     Dates: start: 20110517, end: 20110524
  5. VALDOXAN (AGOMELATIN) [Suspect]
     Dosage: 25 MG (25 MG, 1 IN 1 D), ORAL; 50 MG (50 MG, 1 IN 1 D),ORAL
     Route: 048
     Dates: start: 20110509, end: 20110516
  6. ESCITALOPRAM OXALATE [Suspect]
     Dosage: 10 MG (10 MG 1 IN 1 D), ORAL; 15 MG (15 MG, 1 IN 1 D), ORAL; 20 MG (20 MG, 1 IN 1 D), ORAL
     Route: 048
     Dates: start: 20110517, end: 20110525
  7. ESCITALOPRAM OXALATE [Suspect]
     Dosage: 10 MG (10 MG 1 IN 1 D), ORAL; 15 MG (15 MG, 1 IN 1 D), ORAL; 20 MG (20 MG, 1 IN 1 D), ORAL
     Route: 048
     Dates: start: 20110301, end: 20110509
  8. ESCITALOPRAM OXALATE [Suspect]
     Dosage: 10 MG (10 MG 1 IN 1 D), ORAL; 15 MG (15 MG, 1 IN 1 D), ORAL; 20 MG (20 MG, 1 IN 1 D), ORAL
     Route: 048
     Dates: start: 20110510, end: 20110516

REACTIONS (4)
  - RED BLOOD CELL COUNT DECREASED [None]
  - NEUTROPENIA [None]
  - WHITE BLOOD CELL COUNT DECREASED [None]
  - HAEMOGLOBIN DECREASED [None]
